FAERS Safety Report 7548883-0 (Version None)
Quarter: 2011Q2

REPORT INFORMATION
  Report Type: 
  Country: None (occurrence: None)
  Receive Date: 20110615
  Receipt Date: 20110606
  Transmission Date: 20111010
  Serious: Yes (Hospitalization)
  Sender: FDA-Public Use
  Company Number: US-CELGENEUS-ABX06-05-0223

PATIENT
  Sex: Female
  Weight: 83.082 kg

DRUGS (11)
  1. HERCEPTIN [Suspect]
     Route: 051
     Dates: start: 20050324, end: 20050324
  2. ABRAXANE [Suspect]
     Dosage: CYCLE 9, 4 WEEKS
     Route: 041
     Dates: start: 20050324, end: 20050331
  3. PROMETHAZINE [Concomitant]
     Indication: NAUSEA
     Dosage: 12.5 MG AS NEEDED
     Route: 048
     Dates: start: 20050324
  4. CITALOPRAM [Concomitant]
     Indication: DEPRESSION
     Dosage: 20 MILLIGRAM
     Route: 048
  5. PERCOCET [Concomitant]
     Indication: PAIN
     Dosage: 5/500 AS NEEDED
     Route: 048
     Dates: start: 20050301
  6. LOPRESSOR [Concomitant]
     Dosage: 50 MILLIGRAM
     Route: 048
  7. AMBIEN [Concomitant]
     Indication: INSOMNIA
     Dosage: 5 MG AS NEEDED
     Route: 048
     Dates: start: 20050301
  8. NIFEREX [Concomitant]
     Dosage: 1 TAB ONCE A DAY
     Route: 048
  9. HERCEPTIN [Suspect]
     Route: 051
     Dates: start: 20050331
  10. CITALOPRAM [Concomitant]
     Route: 065
  11. PRAVACHOL [Concomitant]
     Dosage: 20 MILLIGRAM
     Route: 048

REACTIONS (3)
  - SEPSIS [None]
  - PNEUMONIA [None]
  - INFECTION [None]
